FAERS Safety Report 23768109 (Version 2)
Quarter: 2024Q2

REPORT INFORMATION
  Report Type: Spontaneous
  Country: US (occurrence: US)
  Receive Date: 20240422
  Receipt Date: 20240604
  Transmission Date: 20240715
  Serious: Yes (Other)
  Sender: FDA-Public Use
  Company Number: US-BAYER-2024A056770

PATIENT
  Age: 66 Year
  Sex: Female

DRUGS (1)
  1. ESTRADIOL [Suspect]
     Active Substance: ESTRADIOL
     Indication: Hot flush
     Dosage: UNK
     Route: 062

REACTIONS (3)
  - Postmenopausal haemorrhage [Recovering/Resolving]
  - Hot flush [None]
  - Incorrect product administration duration [None]

NARRATIVE: CASE EVENT DATE: 20240122
